FAERS Safety Report 5271887-8 (Version None)
Quarter: 2007Q1

REPORT INFORMATION
  Report Type: 
  Country: None (occurrence: None)
  Receive Date: 20070316
  Receipt Date: 20070305
  Transmission Date: 20070707
  Serious: Yes (Death, Hospitalization)
  Sender: FDA-Public Use
  Company Number: GXKR2007IT02263

PATIENT
  Age: 46 Year
  Sex: Female

DRUGS (2)
  1. DICLOFENAC (NGX) (DICLOFENAC) UNKNOWN [Suspect]
     Indication: ARTHRITIS
     Dosage: UNK, UNK, INTRAMUSCULAR
     Route: 030
  2. KETOROLAC (NGX) (KETOROLAC) INJECTION [Suspect]
     Indication: ABDOMINAL PAIN
     Dosage: UNK, UNK, INTRAMUSCULAR
     Route: 030

REACTIONS (23)
  - ALANINE AMINOTRANSFERASE INCREASED [None]
  - ANURIA [None]
  - ASPARTATE AMINOTRANSFERASE INCREASED [None]
  - BACTERAEMIA [None]
  - BLISTER [None]
  - BLOOD CREATINE PHOSPHOKINASE INCREASED [None]
  - BLOOD CREATININE INCREASED [None]
  - BLOOD LACTATE DEHYDROGENASE INCREASED [None]
  - BLOOD PRESSURE DECREASED [None]
  - COAGULOPATHY [None]
  - ERYTHEMA [None]
  - ESCHERICHIA INFECTION [None]
  - GENERAL PHYSICAL HEALTH DETERIORATION [None]
  - HEART RATE INCREASED [None]
  - METABOLIC ACIDOSIS [None]
  - MULTI-ORGAN FAILURE [None]
  - NECROTISING FASCIITIS [None]
  - PERIPHERAL COLDNESS [None]
  - PLATELET COUNT DECREASED [None]
  - POOR PERIPHERAL CIRCULATION [None]
  - POST PROCEDURAL COMPLICATION [None]
  - SOFT TISSUE DISORDER [None]
  - WHITE BLOOD CELL COUNT DECREASED [None]
